FAERS Safety Report 15358931 (Version 1)
Quarter: 2018Q3

REPORT INFORMATION
  Report Type: Spontaneous
  Country: US (occurrence: US)
  Receive Date: 20180906
  Receipt Date: 20180906
  Transmission Date: 20181010
  Serious: No
  Sender: FDA-Public Use
  Company Number: US-PTC THERAPEUTICS, INC.-US-2018PTC000690

PATIENT

DRUGS (3)
  1. EMFLAZA [Suspect]
     Active Substance: DEFLAZACORT
     Indication: DUCHENNE MUSCULAR DYSTROPHY
     Dosage: 111 MG, SATURDAY + SUNDAY
     Route: 048
     Dates: start: 20171031
  2. EMFLAZA [Suspect]
     Active Substance: DEFLAZACORT
     Dosage: 18 MG, QD
     Route: 048
     Dates: start: 20170715, end: 20170824
  3. EMFLAZA [Suspect]
     Active Substance: DEFLAZACORT
     Dosage: 21 MG, QD
     Route: 048
     Dates: start: 20170825, end: 20171030

REACTIONS (5)
  - Mobility decreased [Not Recovered/Not Resolved]
  - Off label use [Unknown]
  - Weight increased [Unknown]
  - Growth retardation [Recovered/Resolved]
  - Cushingoid [Recovered/Resolved]

NARRATIVE: CASE EVENT DATE: 201801
